FAERS Safety Report 18369607 (Version 2)
Quarter: 2020Q4

REPORT INFORMATION
  Report Type: Other
  Country: ES (occurrence: ES)
  Receive Date: 20201012
  Receipt Date: 20201218
  Transmission Date: 20210114
  Serious: Yes (Other)
  Sender: FDA-Public Use
  Company Number: ES-ROCHE-2688015

PATIENT

DRUGS (7)
  1. HYDROXYCHLOROQUINE [Suspect]
     Active Substance: HYDROXYCHLOROQUINE
     Indication: COVID-19
     Dosage: THE DOSE OF HQC WAS 400 MG TWICE DAILY AS A LOADING DOSE, FOLLOWED BY 200 MG TWICE DAILY FOR AN ADDI
     Route: 065
  2. INTERFERON BETA-1B [Suspect]
     Active Substance: INTERFERON BETA-1B
     Indication: COVID-19
     Route: 065
  3. REMDESIVIR. [Suspect]
     Active Substance: REMDESIVIR
     Indication: COVID-19
     Route: 065
  4. LOPINAVIR/RITONAVIR [Suspect]
     Active Substance: LOPINAVIR\RITONAVIR
     Indication: COVID-19
     Route: 065
  5. TOCILIZUMAB. [Suspect]
     Active Substance: TOCILIZUMAB
     Indication: COVID-19
     Dosage: ACCORDING TO GUIDELINES, TOCILIZUMAB WAS ADDED TO INITIAL THERAPY ON ADMISSION AT A DOSE OF 600 MG I
     Route: 042
  6. AZITHROMYCIN ANHYDROUS. [Suspect]
     Active Substance: AZITHROMYCIN ANHYDROUS
     Indication: COVID-19
     Dosage: THE DOSE OF AZM WAS 500 MG ON THE FIRST DAY FOLLOWED BY 250 MG FOR ANOTHER 4 DAYS
     Route: 065
  7. TOCILIZUMAB. [Suspect]
     Active Substance: TOCILIZUMAB
     Indication: CYTOKINE RELEASE SYNDROME

REACTIONS (5)
  - Viral load increased [Unknown]
  - Off label use [Unknown]
  - Intentional product use issue [Unknown]
  - Electrocardiogram QT prolonged [Unknown]
  - Heart injury [Unknown]
